FAERS Safety Report 17439520 (Version 1)
Quarter: 2020Q1

REPORT INFORMATION
  Report Type: Spontaneous
  Country: US (occurrence: US)
  Receive Date: 20200219
  Receipt Date: 20200219
  Transmission Date: 20200409
  Serious: Yes (Other)
  Sender: FDA-Public Use
  Company Number: None

PATIENT
  Age: 76 Year
  Sex: Female
  Weight: 79.4 kg

DRUGS (9)
  1. TOPIRAMATE 100MG BID [Concomitant]
  2. POLYETHYLENE GLYCOL 17GM DAILY [Concomitant]
  3. SPIRONOLACTONE 25MG BID [Concomitant]
  4. MONTELUKAST 10MG DAILY [Concomitant]
  5. PHENYTHOIN 100MG BID [Concomitant]
  6. LEVOTHYROXINE 75 MCG DAILY [Concomitant]
  7. POTASSIUM CHLORIDE 10MEQ MWF [Concomitant]
  8. PROPAFENONE. [Suspect]
     Active Substance: PROPAFENONE
     Indication: ATRIAL FIBRILLATION
     Route: 048
     Dates: start: 20200108, end: 20200109
  9. LEVETIRACETAM 1500MG BID [Concomitant]

REACTIONS (3)
  - Rash maculo-papular [None]
  - Status epilepticus [None]
  - Erythema [None]

NARRATIVE: CASE EVENT DATE: 20200109
